FAERS Safety Report 15352518 (Version 2)
Quarter: 2018Q3

REPORT INFORMATION
  Report Type: Spontaneous
  Country: AT (occurrence: AT)
  Receive Date: 20180905
  Receipt Date: 20180905
  Transmission Date: 20181010
  Serious: Yes (Hospitalization)
  Sender: FDA-Public Use
  Company Number: PHHY2018AT087750

PATIENT
  Age: 53 Year
  Sex: Female

DRUGS (2)
  1. CICLOSPORIN [Suspect]
     Active Substance: CYCLOSPORINE
     Indication: PRODUCT USED FOR UNKNOWN INDICATION
     Dosage: UNK
     Route: 065
     Dates: start: 201806
  2. PLACEBO [Suspect]
     Active Substance: UNSPECIFIED INGREDIENT
     Indication: ACUTE GRAFT VERSUS HOST DISEASE
     Dosage: 100 MG, UNK
     Route: 065
     Dates: start: 20180627

REACTIONS (1)
  - Microangiopathy [Recovered/Resolved]

NARRATIVE: CASE EVENT DATE: 20180826
